FAERS Safety Report 7428992-7 (Version None)
Quarter: 2011Q2

REPORT INFORMATION
  Report Type: 
  Country: None (occurrence: None)
  Receive Date: 20110421
  Receipt Date: 20110412
  Transmission Date: 20111010
  Serious: Yes (Hospitalization)
  Sender: FDA-Public Use
  Company Number: US-B.I. PHARMACEUTICALS,INC./RIDGEFIELD-2011-BP-10803BP

PATIENT
  Age: 73 Year
  Sex: Female
  Weight: 76 kg

DRUGS (14)
  1. PRADAXA [Suspect]
     Indication: ATRIAL FIBRILLATION
     Dosage: 300 MG
     Route: 048
  2. TEKTURNA [Concomitant]
     Dosage: 110 MG
  3. ATACAND [Concomitant]
     Dosage: 16 MG
  4. CHOLESTYRAMINE [Concomitant]
     Dosage: 4 G
  5. DIGOXIN [Concomitant]
     Dosage: 0.125 MG
  6. ATENOLOL [Concomitant]
     Dosage: 100 MG
  7. VITAMIN D [Concomitant]
  8. ASPIRIN [Suspect]
     Indication: CARDIOVASCULAR EVENT PROPHYLAXIS
     Dosage: 81 MG
     Route: 048
  9. VESICARE [Concomitant]
     Dosage: 5 MG
  10. TRAMADOL HCL [Concomitant]
     Dosage: 50 MG
  11. AMARYL [Concomitant]
     Dosage: 4 MG
  12. LOVAZA [Concomitant]
  13. PRAVASTATIN [Concomitant]
     Dosage: 40 MG
  14. RESERPINE [Concomitant]
     Dosage: 0.25 MG

REACTIONS (13)
  - HAEMATOCRIT DECREASED [None]
  - MELAENA [None]
  - HYPOTENSION [None]
  - GASTROINTESTINAL HAEMORRHAGE [None]
  - CHEST PAIN [None]
  - HAEMOGLOBIN DECREASED [None]
  - PLATELET COUNT DECREASED [None]
  - LETHARGY [None]
  - ASTHENIA [None]
  - HAEMATOCHEZIA [None]
  - DIZZINESS [None]
  - DYSPNOEA [None]
  - CREATININE RENAL CLEARANCE DECREASED [None]
